FAERS Safety Report 19889851 (Version 7)
Quarter: 2022Q3

REPORT INFORMATION
  Report Type: Spontaneous
  Country: DE (occurrence: DE)
  Receive Date: 20210927
  Receipt Date: 20220711
  Transmission Date: 20221027
  Serious: Yes (Death, Hospitalization, Other)
  Sender: FDA-Public Use
  Company Number: DE-002147023-NVSC2021DE104495

PATIENT
  Sex: Male
  Weight: 72 kg

DRUGS (26)
  1. VALSARTAN [Suspect]
     Active Substance: VALSARTAN
     Indication: Hypertension
     Dosage: UNK
     Route: 065
     Dates: start: 2012, end: 2014
  2. VALSARTAN [Suspect]
     Active Substance: VALSARTAN
     Dosage: 320 MILLIGRAM, QD (160 MG, BID)
     Route: 065
     Dates: start: 201908
  3. VALSARTAN [Suspect]
     Active Substance: VALSARTAN
     Dosage: 160 MILLIGRAM, QD (160 MG, QD)
     Route: 065
     Dates: end: 201908
  4. VALSARTAN [Suspect]
     Active Substance: VALSARTAN
     Dosage: 160 MILLIGRAM, QD (160 MG, QD)
     Route: 065
  5. HYDROCHLOROTHIAZIDE\VALSARTAN [Suspect]
     Active Substance: HYDROCHLOROTHIAZIDE\VALSARTAN
     Dosage: 1 DOSAGE FORM, QD (1 DF, QD,160/12.5MILLIGRAM )
     Route: 065
     Dates: start: 2015, end: 2018
  6. SPIRIVA [Concomitant]
     Active Substance: TIOTROPIUM BROMIDE MONOHYDRATE
     Indication: Product used for unknown indication
     Dosage: 18 MICROGRAM, QD (18 UG, QD, 2 PUFF)
     Route: 055
  7. TORSEMIDE [Concomitant]
     Active Substance: TORSEMIDE
     Indication: Product used for unknown indication
     Dosage: 20 MILLIGRAM, QD (10 MG, BID, MORNING AND NOON)
     Route: 065
  8. GLUCOBAY [Concomitant]
     Active Substance: ACARBOSE
     Indication: Product used for unknown indication
     Dosage: 100 MILLIGRAM, QD (100 MG, QD, MORNING)
     Route: 065
  9. ALLOPURINOL [Concomitant]
     Active Substance: ALLOPURINOL
     Indication: Product used for unknown indication
     Dosage: UNK UNK, QD (1/4 X 300 MG, EVENING)
     Route: 065
  10. ALLOPURINOL [Concomitant]
     Active Substance: ALLOPURINOL
     Dosage: UNK UNK, QD (1/2 X150 MG, EVENING)
     Route: 065
  11. PANTOZOL [Concomitant]
     Active Substance: PANTOPRAZOLE SODIUM
     Indication: Product used for unknown indication
     Dosage: 40 MILLIGRAM, QD (40 MG, QD, MORNING)
     Route: 065
  12. PANTOZOL [Concomitant]
     Active Substance: PANTOPRAZOLE SODIUM
     Dosage: 40 MG, BID (IN MORNING AND EVENING)
     Route: 065
  13. ATORVASTATIN [Concomitant]
     Active Substance: ATORVASTATIN
     Indication: Product used for unknown indication
     Dosage: 20 MILLIGRAM, QD (20 MG, QD)
     Route: 065
  14. MOLSIDOMINE [Concomitant]
     Active Substance: MOLSIDOMINE
     Indication: Product used for unknown indication
     Dosage: 8 MILLIGRAM, QD (8 MG, QD, EVENING)
     Route: 065
  15. ALBUTEROL [Concomitant]
     Active Substance: ALBUTEROL
     Indication: Product used for unknown indication
     Dosage: UNK UNK, PRN
     Route: 065
  16. NOVALGIN (METAMIZOLE SODIUM) [Concomitant]
     Active Substance: METAMIZOLE SODIUM
     Indication: Product used for unknown indication
     Dosage: 40 GTT AS NEEDED UP TO 4X DAILY
     Route: 065
  17. NOVALGIN (METAMIZOLE SODIUM) [Concomitant]
     Active Substance: METAMIZOLE SODIUM
     Dosage: 30 GTT, AS NEEDED
     Route: 065
  18. TORSEMIDE [Concomitant]
     Active Substance: TORSEMIDE
     Indication: Product used for unknown indication
     Dosage: 10 MILLIGRAM, QD (10 MG, QD, MORNING)
     Route: 065
     Dates: start: 201908
  19. TORSEMIDE [Concomitant]
     Active Substance: TORSEMIDE
     Dosage: UNK
     Route: 065
     Dates: end: 201908
  20. SIMVASTATIN [Concomitant]
     Active Substance: SIMVASTATIN
     Indication: Product used for unknown indication
     Dosage: 20 MILLIGRAM, QD (20 MG, QD, EVENING)
     Route: 065
  21. ISOSORBIDE DINITRATE [Concomitant]
     Active Substance: ISOSORBIDE DINITRATE
     Indication: Product used for unknown indication
     Dosage: 20 MILLIGRAM, QD
     Route: 065
  22. POLYETHYLENE GLYCOLS [Concomitant]
     Active Substance: POLYETHYLENE GLYCOLS
     Dosage: 1 UP TO MAX.4 AS NEEDED) (SOLID PIECES, PER OS
     Route: 065
     Dates: start: 20200928
  23. CANDESARTAN [Concomitant]
     Active Substance: CANDESARTAN
     Indication: Product used for unknown indication
     Dosage: 16 MILLIGRAM, QD (MORNING)
     Route: 065
     Dates: start: 20200528, end: 20200601
  24. CANDESARTAN [Concomitant]
     Active Substance: CANDESARTAN
     Dosage: 1.5 DF, QD (ONE TABLET IN THE MORNING, HALF OF A TABLET IN THE EVENING)
     Route: 065
     Dates: start: 20200528, end: 20200601
  25. MOLSIDOMINE [Concomitant]
     Active Substance: MOLSIDOMINE
     Indication: Product used for unknown indication
     Dosage: 8 MILLIGRAM, QD(EVENING)
     Route: 065
     Dates: start: 20200528, end: 20200601
  26. ATROVENT [Concomitant]
     Active Substance: IPRATROPIUM BROMIDE
     Indication: Product used for unknown indication
     Dosage: UNK,QID
     Route: 055

REACTIONS (111)
  - Bronchial obstruction [Fatal]
  - Bronchial carcinoma [Fatal]
  - Back pain [Fatal]
  - Hyperplasia [Fatal]
  - Carcinoembryonic antigen increased [Fatal]
  - Metastasis [Fatal]
  - Neoplasm [Fatal]
  - Metastases to spine [Fatal]
  - Haemorrhage [Unknown]
  - Oxygen saturation decreased [Unknown]
  - Hypertensive crisis [Unknown]
  - Dizziness [Unknown]
  - Haemoptysis [Unknown]
  - Blood pressure systolic increased [Recovered/Resolved]
  - Arthralgia [Unknown]
  - Syncope [Unknown]
  - Fall [Unknown]
  - Pneumonia [Recovering/Resolving]
  - Pulmonary embolism [Unknown]
  - Ventricular hypertrophy [Recovering/Resolving]
  - Dyspnoea [Recovering/Resolving]
  - Chronic obstructive pulmonary disease [Unknown]
  - Aortic aneurysm [Unknown]
  - Lung infiltration [Unknown]
  - Nasal congestion [Recovering/Resolving]
  - Sinus tachycardia [Unknown]
  - Chronic kidney disease [Unknown]
  - Pulmonary calcification [Unknown]
  - Mitral valve incompetence [Unknown]
  - Bundle branch block right [Unknown]
  - Cough [Unknown]
  - General physical health deterioration [Unknown]
  - Pleural effusion [Unknown]
  - Abdominal pain upper [Unknown]
  - Diastolic dysfunction [Unknown]
  - Rales [Unknown]
  - Spinal pain [Recovering/Resolving]
  - Talipes [Unknown]
  - Tricuspid valve incompetence [Unknown]
  - Renal function test abnormal [Unknown]
  - Atrial fibrillation [Unknown]
  - Cardiac failure [Unknown]
  - Haemorrhagic cyst [Unknown]
  - Bradycardia [Unknown]
  - Acquired diaphragmatic eventration [Unknown]
  - Pulmonary congestion [Unknown]
  - Blood pressure increased [Recovered/Resolved]
  - Type 2 diabetes mellitus [Unknown]
  - Angiosclerosis [Unknown]
  - Bradyarrhythmia [Unknown]
  - Arrhythmia [Unknown]
  - Myosclerosis [Unknown]
  - Breath sounds abnormal [Unknown]
  - Thrombosis [Unknown]
  - Spinal compression fracture [Unknown]
  - Myelopathy [Unknown]
  - Osteochondrosis [Unknown]
  - Spinal cord injury thoracic [Unknown]
  - Cervical spinal stenosis [Unknown]
  - Renal impairment [Unknown]
  - Tricuspid valve sclerosis [Unknown]
  - Angina pectoris [Unknown]
  - Wheezing [Unknown]
  - Scoliosis [Unknown]
  - Hepatomegaly [Unknown]
  - Hepatic steatosis [Unknown]
  - Adrenal mass [Unknown]
  - Knee deformity [Unknown]
  - Osteoarthritis [Unknown]
  - Chronic respiratory disease [Unknown]
  - Coronary artery disease [Unknown]
  - Cholelithiasis [Unknown]
  - Sensory disturbance [Unknown]
  - Intervertebral disc degeneration [Unknown]
  - Foot deformity [Unknown]
  - Panic disorder [Unknown]
  - Ligament sprain [Unknown]
  - Intervertebral disc protrusion [Unknown]
  - Anxiety [Unknown]
  - Tissue infiltration [Unknown]
  - Aortic dilatation [Unknown]
  - Lumbar spinal stenosis [Unknown]
  - Facet joint syndrome [Unknown]
  - Motor dysfunction [Unknown]
  - Spinal stenosis [Unknown]
  - Asthma [Unknown]
  - Tenderness [Unknown]
  - Lumbarisation [Unknown]
  - Arthropathy [Unknown]
  - Hypertensive heart disease [Unknown]
  - Cardiomegaly [Unknown]
  - Aortic valve sclerosis [Unknown]
  - Intercostal neuralgia [Unknown]
  - Bone cyst [Unknown]
  - Productive cough [Unknown]
  - Urethral disorder [Unknown]
  - Nodal rhythm [Unknown]
  - Feeling abnormal [Unknown]
  - Spinal osteoarthritis [Unknown]
  - Tension [Unknown]
  - Angiopathy [Unknown]
  - Lymph node calcification [Unknown]
  - Hiatus hernia [Unknown]
  - Bone marrow oedema [Unknown]
  - Ventricular extrasystoles [Unknown]
  - Dilatation atrial [Unknown]
  - Osteolysis [Unknown]
  - Sinus bradycardia [Unknown]
  - Mitral valve sclerosis [Unknown]
  - Lymphadenopathy [Unknown]
  - Ligamentum flavum hypertrophy [Unknown]

NARRATIVE: CASE EVENT DATE: 20180201
